FAERS Safety Report 7480720-5 (Version None)
Quarter: 2011Q2

REPORT INFORMATION
  Report Type: 
  Country: None (occurrence: None)
  Receive Date: 20110516
  Receipt Date: 20110503
  Transmission Date: 20111010
  Serious: Yes (Hospitalization)
  Sender: FDA-Public Use
  Company Number: US-BAYER-200943303NA

PATIENT
  Age: 28 Year
  Sex: Female
  Weight: 76.19 kg

DRUGS (5)
  1. YAZ [Suspect]
     Indication: PRODUCT USED FOR UNKNOWN INDICATION
     Dosage: UNK
     Dates: start: 20090908, end: 20091003
  2. ALPRAZOLAM [Concomitant]
  3. YASMIN [Suspect]
     Indication: PRODUCT USED FOR UNKNOWN INDICATION
     Dates: start: 20090909, end: 20091004
  4. XANAX [Concomitant]
  5. IBUPROFEN [Concomitant]

REACTIONS (5)
  - CHEST PAIN [None]
  - PULMONARY EMBOLISM [None]
  - SWELLING [None]
  - HYPOAESTHESIA [None]
  - PAIN [None]
